FAERS Safety Report 10658363 (Version 3)
Quarter: 2015Q1

REPORT INFORMATION
  Report Type: Spontaneous
  Country: US (occurrence: US)
  Receive Date: 20141217
  Receipt Date: 20150107
  Transmission Date: 20150720
  Serious: Yes (Other)
  Sender: FDA-Public Use
  Company Number: US-GILEAD-2014-0127690

PATIENT
  Age: 59 Year
  Sex: Female

DRUGS (1)
  1. LETAIRIS [Suspect]
     Active Substance: AMBRISENTAN
     Indication: PRODUCT USED FOR UNKNOWN INDICATION
     Dosage: 5 MG, UNK
     Route: 065
     Dates: start: 20091217

REACTIONS (6)
  - Malaise [Unknown]
  - Nausea [Unknown]
  - Back disorder [Unknown]
  - Candida infection [Unknown]
  - Nasopharyngitis [Not Recovered/Not Resolved]
  - Escherichia infection [Unknown]
